FAERS Safety Report 24035498 (Version 2)
Quarter: 2024Q3

REPORT INFORMATION
  Report Type: Spontaneous
  Country: BY (occurrence: BY)
  Receive Date: 20240701
  Receipt Date: 20240703
  Transmission Date: 20241017
  Serious: Yes (Death)
  Sender: JOHNSON AND JOHNSON
  Company Number: BY-JNJFOC-20240674223

PATIENT
  Age: 79 Year
  Sex: Female
  Weight: 67.1 kg

DRUGS (10)
  1. BEDAQUILINE [Suspect]
     Active Substance: BEDAQUILINE
     Indication: Tuberculosis
     Dosage: FOR 2 WEEKS
     Route: 048
     Dates: start: 20220623
  2. BEDAQUILINE [Suspect]
     Active Substance: BEDAQUILINE
     Route: 048
     Dates: end: 20221216
  3. PRETOMANID [Suspect]
     Active Substance: PRETOMANID
     Indication: Tuberculosis
     Route: 048
     Dates: start: 20220623, end: 20221216
  4. LINEZOLID [Suspect]
     Active Substance: LINEZOLID
     Indication: Tuberculosis
     Dosage: FOR 16 WEEKS
     Route: 048
     Dates: start: 20220623
  5. LINEZOLID [Suspect]
     Active Substance: LINEZOLID
     Route: 048
     Dates: end: 20221216
  6. MOXIFLOXACIN [Suspect]
     Active Substance: MOXIFLOXACIN
     Indication: Tuberculosis
     Route: 048
     Dates: start: 20220623, end: 20221216
  7. ENALAPRIL [Concomitant]
     Active Substance: ENALAPRIL
     Indication: Hypertension
     Route: 048
     Dates: start: 20220617, end: 20230814
  8. FUROSEMIDE [Concomitant]
     Active Substance: FUROSEMIDE
     Indication: Cardiac failure
     Route: 048
     Dates: start: 20220617, end: 20230814
  9. MONOINSULIN HR [Concomitant]
     Indication: Type 2 diabetes mellitus
     Route: 058
     Dates: start: 20220617, end: 20230814
  10. PROTAMINE [Concomitant]
     Active Substance: PROTAMINE
     Indication: Type 2 diabetes mellitus
     Route: 058
     Dates: start: 20220617, end: 20230814

REACTIONS (1)
  - Cardiac failure [Fatal]
